FAERS Safety Report 11767644 (Version 1)
Quarter: 2015Q4

REPORT INFORMATION
  Report Type: Spontaneous
  Country: None (occurrence: None)
  Receive Date: 20151120
  Receipt Date: 20151120
  Transmission Date: 20160304
  Serious: No
  Sender: FDA-Public Use
  Company Number: None

PATIENT
  Age: 35 Year
  Sex: Female
  Weight: 57.61 kg

DRUGS (2)
  1. PRENATAL ONE VITAMIN [Concomitant]
  2. DICLEGIS [Suspect]
     Active Substance: DOXYLAMINE SUCCINATE\PYRIDOXINE HYDROCHLORIDE
     Indication: VOMITING IN PREGNANCY
     Dosage: 2 PILLS
     Route: 048
     Dates: start: 20151118, end: 20151119

REACTIONS (5)
  - Movement disorder [None]
  - Somnolence [None]
  - Lethargy [None]
  - Impaired work ability [None]
  - Fatigue [None]

NARRATIVE: CASE EVENT DATE: 20151119
